FAERS Safety Report 10003494 (Version 1)
Quarter: 2014Q1

REPORT INFORMATION
  Report Type: Spontaneous
  Country: US (occurrence: US)
  Receive Date: 20140312
  Receipt Date: 20140312
  Transmission Date: 20141002
  Serious: No
  Sender: FDA-Public Use
  Company Number: US-PFIZER INC-2014070054

PATIENT
  Age: 49 Year
  Sex: Female

DRUGS (11)
  1. ZITHROMAX [Suspect]
     Dosage: 500 MG, UNK
  2. VIBRAMYCIN [Suspect]
     Dosage: 100 MG, UNK
  3. CEFUROXIME [Suspect]
     Dosage: UNK
  4. GENTAMICIN SULFATE [Suspect]
     Dosage: UNK
  5. MEROPENEM [Suspect]
     Dosage: UNK
  6. PRIMAQUINE [Suspect]
     Dosage: UNK
  7. AUGMENTIN XR [Suspect]
     Dosage: UNK
  8. AZTREONAM [Suspect]
     Dosage: UNK
  9. BIAXIN [Suspect]
     Dosage: 250 MG, UNK
  10. CECLOR [Suspect]
     Dosage: UNK
  11. TIMENTIN [Suspect]
     Dosage: UNK

REACTIONS (1)
  - Drug hypersensitivity [Unknown]
